FAERS Safety Report 24933523 (Version 1)
Quarter: 2025Q1

REPORT INFORMATION
  Report Type: Spontaneous
  Country: RU (occurrence: RU)
  Receive Date: 20250206
  Receipt Date: 20250206
  Transmission Date: 20250408
  Serious: Yes (Other)
  Sender: ROCHE
  Company Number: RU-ROCHE-10000194814

PATIENT
  Sex: Female

DRUGS (3)
  1. KADCYLA [Suspect]
     Active Substance: ADO-TRASTUZUMAB EMTANSINE
     Indication: Product used for unknown indication
     Route: 065
  2. HERCEPTIN [Suspect]
     Active Substance: TRASTUZUMAB
     Indication: Product used for unknown indication
     Route: 065
  3. PERJETA [Suspect]
     Active Substance: PERTUZUMAB
     Indication: Product used for unknown indication
     Route: 065

REACTIONS (10)
  - Axillary pain [Unknown]
  - Asthenia [Unknown]
  - Headache [Unknown]
  - Metastases to lymph nodes [Unknown]
  - Lymphoid tissue hyperplasia [Unknown]
  - Lymphadenopathy [Unknown]
  - Bronchitis chronic [Unknown]
  - Pulmonary fibrosis [Unknown]
  - Pleural adhesion [Unknown]
  - Renal cyst [Unknown]
